FAERS Safety Report 17765130 (Version 1)
Quarter: 2020Q2

REPORT INFORMATION
  Report Type: Spontaneous
  Country: CL (occurrence: CL)
  Receive Date: 20200511
  Receipt Date: 20200511
  Transmission Date: 20200714
  Serious: Yes (Death, Other)
  Sender: FDA-Public Use
  Company Number: CL-ASTELLAS-2020US013925

PATIENT
  Age: 82 Year
  Sex: Male

DRUGS (1)
  1. XTANDI [Suspect]
     Active Substance: ENZALUTAMIDE
     Indication: PROSTATE CANCER METASTATIC
     Route: 048
     Dates: start: 20190502, end: 20200402

REACTIONS (3)
  - Asthenia [Unknown]
  - Death [Fatal]
  - Bone density decreased [Unknown]

NARRATIVE: CASE EVENT DATE: 20200422
